FAERS Safety Report 19269129 (Version 1)
Quarter: 2021Q2

REPORT INFORMATION
  Report Type: Spontaneous
  Country: US (occurrence: US)
  Receive Date: 20210517
  Receipt Date: 20210517
  Transmission Date: 20210717
  Serious: Yes (Life-Threatening, Other)
  Sender: FDA-Public Use
  Company Number: US-FOUNDATIONCONSUMERHC-2021-US-009758

PATIENT
  Age: 53 Year
  Sex: Female
  Weight: 54.43 kg

DRUGS (2)
  1. BRONKAID DUAL ACTION FORMULA [Suspect]
     Active Substance: EPHEDRINE SULFATE\GUAIFENESIN
     Indication: INTENTIONAL OVERDOSE
     Route: 065
     Dates: start: 2012, end: 20210503
  2. UNSPECIFIED DEPRESSION MEDICATIONS [Concomitant]

REACTIONS (6)
  - Suicide attempt [Recovered/Resolved]
  - Speech disorder [Unknown]
  - Intentional overdose [Recovered/Resolved]
  - Hypertension [Not Recovered/Not Resolved]
  - Intentional product misuse [Recovered/Resolved]
  - Depressed level of consciousness [Unknown]

NARRATIVE: CASE EVENT DATE: 20210503
